FAERS Safety Report 6554375-8 (Version None)
Quarter: 2010Q1

REPORT INFORMATION
  Report Type: 
  Country: None (occurrence: None)
  Receive Date: 20100127
  Receipt Date: 20100120
  Transmission Date: 20100710
  Serious: Yes (Hospitalization, Disabling, Other)
  Sender: FDA-Public Use
  Company Number: B0629027A

PATIENT
  Age: 54 Year
  Sex: Female

DRUGS (1)
  1. LAPATINIB [Suspect]
     Indication: DRUG USE FOR UNKNOWN INDICATION
     Dosage: 5TAB PER DAY
     Route: 065

REACTIONS (1)
  - SKIN CHAPPED [None]
